FAERS Safety Report 19110389 (Version 5)
Quarter: 2021Q2

REPORT INFORMATION
  Report Type: Spontaneous
  Country: FR (occurrence: FR)
  Receive Date: 20210409
  Receipt Date: 20210504
  Transmission Date: 20210717
  Serious: Yes (Hospitalization, Other)
  Sender: FDA-Public Use
  Company Number: FR-AUROBINDO-AUR-APL-2021-014938

PATIENT
  Age: 53 Year
  Sex: Male

DRUGS (4)
  1. TACROLIMUS. [Suspect]
     Active Substance: TACROLIMUS
     Indication: IMMUNOSUPPRESSANT DRUG THERAPY
     Dosage: UNK
     Route: 065
     Dates: start: 2019, end: 20200201
  2. PANTOPRAZOLE [Suspect]
     Active Substance: PANTOPRAZOLE
     Indication: HEPATIC ARTERY STENOSIS
     Dosage: 20 MILLIGRAM
     Route: 065
     Dates: start: 2019, end: 20200201
  3. ASPIRIN. [Concomitant]
     Active Substance: ASPIRIN
     Indication: HEPATIC ARTERY STENOSIS
     Dosage: 75 MILLIGRAM
     Route: 065
     Dates: start: 2019
  4. EVEROLIMUS. [Suspect]
     Active Substance: EVEROLIMUS
     Indication: IMMUNOSUPPRESSION
     Dosage: UNK
     Route: 065

REACTIONS (12)
  - Product administration error [Recovered/Resolved]
  - Intervertebral discitis [Recovered/Resolved]
  - Pyrexia [Recovered/Resolved]
  - Oligoarthritis [Recovered/Resolved]
  - Drug level increased [Recovered/Resolved]
  - Back pain [Recovered/Resolved]
  - Hypomagnesaemia [Recovered/Resolved]
  - Overdose [Unknown]
  - Musculoskeletal stiffness [Recovered/Resolved]
  - Mobility decreased [Recovered/Resolved]
  - Chondrocalcinosis pyrophosphate [Recovered/Resolved]
  - Condition aggravated [Recovered/Resolved]

NARRATIVE: CASE EVENT DATE: 202001
